FAERS Safety Report 23368965 (Version 2)
Quarter: 2024Q1

REPORT INFORMATION
  Report Type: Spontaneous
  Country: JP (occurrence: JP)
  Receive Date: 20240105
  Receipt Date: 20240112
  Transmission Date: 20240410
  Serious: Yes (Other)
  Sender: FDA-Public Use
  Company Number: JP-TAKEDA-2023TJP017526

PATIENT
  Age: 7 Decade
  Sex: Male

DRUGS (1)
  1. LEUPLIN [Suspect]
     Active Substance: LEUPROLIDE ACETATE
     Indication: Prostate cancer
     Dosage: UNK?LEUPLIN PRO FOR INJECTION KIT 22.5 MG
     Route: 065

REACTIONS (3)
  - Pituitary tumour [Unknown]
  - Blood testosterone increased [Unknown]
  - Prostatic specific antigen increased [Unknown]
